FAERS Safety Report 7551089-2 (Version None)
Quarter: 2011Q2

REPORT INFORMATION
  Report Type: 
  Country: None (occurrence: None)
  Receive Date: 20110616
  Receipt Date: 20110525
  Transmission Date: 20111010
  Serious: Yes (Hospitalization, Other)
  Sender: FDA-Public Use
  Company Number: US-BAYER-2011-028006

PATIENT
  Age: 24 Year
  Sex: Female
  Weight: 93 kg

DRUGS (8)
  1. VICODIN [Concomitant]
     Dosage: UNK
     Dates: start: 20090111
  2. TORADOL [Concomitant]
     Dosage: UNK
     Dates: start: 20090111
  3. BACTRIM DS [Concomitant]
     Dosage: UNK UNK, BID
     Dates: start: 20090129, end: 20090202
  4. MORPHINE [Concomitant]
     Dosage: UNK
     Dates: start: 20090111
  5. MOTRIN [Concomitant]
     Dosage: 600 MG, TID
  6. ZOFRAN [Concomitant]
     Dosage: UNK
     Dates: start: 20090111
  7. DROSPIRENONE AND ETHINYL ESTRADIOL [Suspect]
     Indication: CONTRACEPTION
     Dosage: UNK
     Route: 048
     Dates: start: 20081101, end: 20090501
  8. AMOXICILLIN [Concomitant]
     Dosage: 500 MG, QID
     Dates: start: 20090112, end: 20090122

REACTIONS (3)
  - GALLBLADDER DISORDER [None]
  - EMOTIONAL DISTRESS [None]
  - CHOLECYSTITIS CHRONIC [None]
